FAERS Safety Report 5415620-5 (Version None)
Quarter: 2007Q3

REPORT INFORMATION
  Report Type: 
  Country: None (occurrence: None)
  Receive Date: 20070815
  Receipt Date: 20070808
  Transmission Date: 20080115
  Serious: Yes (Hospitalization)
  Sender: FDA-Public Use
  Company Number: FR-ASTRAZENECA-2007CG01158

PATIENT
  Age: 31835 Day
  Sex: Female

DRUGS (6)
  1. OMEPRAZOLE [Suspect]
     Route: 048
     Dates: end: 20070711
  2. PAROXETINE HCL [Suspect]
     Indication: MAJOR DEPRESSION
     Route: 048
     Dates: end: 20070711
  3. ROCEPHIN [Suspect]
     Indication: LUNG INFECTION
     Route: 042
     Dates: start: 20070710
  4. LASIX [Suspect]
     Indication: CARDIAC FAILURE
     Route: 048
     Dates: end: 20070711
  5. DURAGESIC-100 [Concomitant]
     Indication: PAIN
     Route: 062
  6. MOVICOL [Concomitant]
     Route: 048

REACTIONS (1)
  - HEMIPLEGIA [None]
